FAERS Safety Report 4945085-9 (Version None)
Quarter: 2006Q1

REPORT INFORMATION
  Report Type: 
  Country: None (occurrence: None)
  Receive Date: 20060316
  Receipt Date: 20060308
  Transmission Date: 20060701
  Serious: Yes (Hospitalization, Other)
  Sender: FDA-Public Use
  Company Number: NSADSS2001034160

PATIENT
  Sex: Female

DRUGS (6)
  1. REMICADE [Suspect]
     Route: 041
  2. REMICADE [Suspect]
     Route: 041
  3. REMICADE [Suspect]
     Route: 041
  4. REMICADE [Suspect]
     Indication: RHEUMATOID ARTHRITIS
     Route: 041
  5. METHOTREXATE [Concomitant]
     Indication: RHEUMATOID LUNG
     Dates: start: 20010213
  6. PREDNISONE [Concomitant]

REACTIONS (2)
  - PLEURAL EFFUSION [None]
  - TUBERCULOSIS [None]
